FAERS Safety Report 22012120 (Version 1)
Quarter: 2023Q1

REPORT INFORMATION
  Report Type: Spontaneous
  Country: CN (occurrence: CN)
  Receive Date: 20230220
  Receipt Date: 20230220
  Transmission Date: 20230418
  Serious: Yes (Hospitalization, Other)
  Sender: FDA-Public Use
  Company Number: None

PATIENT
  Age: 10 Year
  Sex: Male
  Weight: 32.2 kg

DRUGS (10)
  1. CYCLOPHOSPHAMIDE [Suspect]
     Active Substance: CYCLOPHOSPHAMIDE
     Indication: Hodgkin^s disease
     Dosage: 0.69 G, DILUTED WITH 250 ML OF GLUCOSE;SODIUM CHLORIDE, RATIO 4:1, NEEDLE, QD, AS PART OF BEACOPP RE
     Route: 041
     Dates: start: 20221208, end: 20221208
  2. DEXTROSE\SODIUM CHLORIDE [Suspect]
     Active Substance: DEXTROSE\SODIUM CHLORIDE
     Indication: Medication dilution
     Dosage: 250 ML, USED TO DILUTE 0.69 G OF CYCLOPHOSPHAMIDE NEEDLE, RATIO 4:1, QD
     Route: 065
     Dates: start: 20221208
  3. SODIUM CHLORIDE [Suspect]
     Active Substance: SODIUM CHLORIDE
     Indication: Medication dilution
     Dosage: 350 ML, USED TO DILUTE 0.106 G OF ETOPOSIDE, QD
     Route: 065
     Dates: start: 20221208, end: 20221210
  4. SODIUM CHLORIDE [Suspect]
     Active Substance: SODIUM CHLORIDE
     Dosage: 250 ML, USED TO DILUTE 26.5 MG OF EPIRUBICIN, QD
     Route: 065
     Dates: start: 20221208
  5. ETOPOSIDE [Suspect]
     Active Substance: ETOPOSIDE
     Indication: Hodgkin^s disease
     Dosage: 0.106 G, DILUTED WITH 350 ML OF 0.9 % SODIUM CHLORIDE, QD, AS PART OF BEACOPP REGIMEN CHEMOTHERAPY
     Route: 041
     Dates: start: 20221208, end: 20221210
  6. EPIRUBICIN [Suspect]
     Active Substance: EPIRUBICIN
     Indication: Hodgkin^s disease
     Dosage: 26.5 MG, DILUTED WITH 250 ML OF 0.9 % SODIUM CHLORIDE, QD, AS PART OF BEACOPP REGIMEN CHEMOTHERAPY
     Route: 041
     Dates: start: 20221208, end: 20221208
  7. PROCARBAZINE [Suspect]
     Active Substance: PROCARBAZINE
     Indication: Hodgkin^s disease
     Dosage: AS PART OF BEACOPP REGIMEN CHEMOTHERAPY
     Route: 065
     Dates: start: 20221208
  8. PREDNISONE [Suspect]
     Active Substance: PREDNISONE
     Indication: Hodgkin^s disease
     Dosage: AS PART OF BEACOPP REGIMEN CHEMOTHERAPY
     Route: 065
     Dates: start: 20221208
  9. BLEOMYCIN [Suspect]
     Active Substance: BLEOMYCIN SULFATE
     Indication: Hodgkin^s disease
     Dosage: AS PART OF BEACOPP REGIMEN CHEMOTHERAPY
     Route: 065
     Dates: start: 20221208
  10. VINCRISTINE [Suspect]
     Active Substance: VINCRISTINE
     Indication: Hodgkin^s disease
     Dosage: AS PART OF BEACOPP REGIMEN CHEMOTHERAPY
     Route: 065
     Dates: start: 20221208

REACTIONS (1)
  - Myelosuppression [Recovering/Resolving]

NARRATIVE: CASE EVENT DATE: 20221215
